FAERS Safety Report 9893043 (Version 1)
Quarter: 2014Q1

REPORT INFORMATION
  Report Type: Spontaneous
  Country: BR (occurrence: BR)
  Receive Date: 20140213
  Receipt Date: 20140213
  Transmission Date: 20141002
  Serious: Yes (Hospitalization, Other)
  Sender: FDA-Public Use
  Company Number: BR-ROCHE-1347204

PATIENT
  Sex: Female
  Weight: 66 kg

DRUGS (5)
  1. XELODA [Suspect]
     Indication: BREAST CANCER
     Route: 048
  2. NAVELBINE [Suspect]
     Indication: BREAST CANCER
     Route: 042
  3. GLIFAGE [Concomitant]
     Indication: DIABETES MELLITUS
     Route: 048
  4. ATENOLOL [Concomitant]
     Indication: HYPERTENSION
     Route: 048
  5. ALPRAZOLAM [Concomitant]
     Indication: ANXIETY
     Route: 048

REACTIONS (9)
  - Cataract [Unknown]
  - Disease progression [Unknown]
  - Wound [Not Recovered/Not Resolved]
  - Decreased appetite [Unknown]
  - Nausea [Unknown]
  - Abdominal pain [Recovered/Resolved]
  - Nail bed inflammation [Unknown]
  - Skin exfoliation [Unknown]
  - Insomnia [Unknown]
